FAERS Safety Report 10532794 (Version 3)
Quarter: 2015Q2

REPORT INFORMATION
  Report Type: Spontaneous
  Country: JP (occurrence: JP)
  Receive Date: 20141022
  Receipt Date: 20150522
  Transmission Date: 20150821
  Serious: Yes (Other)
  Sender: FDA-Public Use
  Company Number: JP-009507513-1410JPN009378

PATIENT
  Age: 42 Year
  Sex: Male
  Weight: 79 kg

DRUGS (8)
  1. SHO-SEIRYU-TO [Suspect]
     Active Substance: HERBALS
     Indication: PROPHYLAXIS
     Dosage: 3 G, BID
     Dates: start: 20140228
  2. LENDORMIN [Suspect]
     Active Substance: BROTIZOLAM
     Indication: INSOMNIA
     Dosage: 0.25 MG, QD
     Route: 048
     Dates: start: 20140414
  3. ONON [Suspect]
     Active Substance: PRANLUKAST
     Indication: SEASONAL ALLERGY
     Dosage: 225 MG, BID
     Route: 048
     Dates: start: 20140411
  4. TALION (BEPOTASTINE BESYLATE) [Suspect]
     Active Substance: BEPOTASTINE
     Indication: SEASONAL ALLERGY
     Dosage: 10 MG, BID
     Route: 048
  5. URSO [Suspect]
     Active Substance: URSODIOL
     Indication: CHRONIC HEPATITIS C
     Dosage: 6 DF, QD
     Route: 048
     Dates: start: 20131209
  6. MYSLEE [Suspect]
     Active Substance: ZOLPIDEM TARTRATE
     Indication: INSOMNIA
     Dosage: 5 MG, QD
     Route: 048
     Dates: start: 20140414
  7. REBETOL [Suspect]
     Active Substance: RIBAVIRIN
     Indication: CHRONIC HEPATITIS C
     Dosage: 400 MG, BID
     Route: 048
     Dates: start: 20140228, end: 20140418
  8. PEGINTRON [Suspect]
     Active Substance: PEGINTERFERON ALFA-2B
     Indication: CHRONIC HEPATITIS C
     Dosage: 100 MICROGRAM, QW
     Route: 058
     Dates: start: 20140228, end: 20140418

REACTIONS (6)
  - Paranoia [Recovered/Resolved]
  - Hallucination [Recovered/Resolved]
  - Rhinitis [Not Recovered/Not Resolved]
  - Abnormal behaviour [Unknown]
  - Insomnia [Unknown]
  - Irritability [Recovered/Resolved]

NARRATIVE: CASE EVENT DATE: 20140411
